FAERS Safety Report 9016325 (Version 2)
Quarter: 2013Q1

REPORT INFORMATION
  Report Type: Spontaneous
  Country: IT (occurrence: IT)
  Receive Date: 20130116
  Receipt Date: 20130128
  Transmission Date: 20140127
  Serious: Yes (Other)
  Sender: FDA-Public Use
  Company Number: IT-GILEAD-2013-0067975

PATIENT
  Age: 82 Year
  Sex: Male

DRUGS (6)
  1. RANOLAZINE [Suspect]
     Indication: ANGINA PECTORIS
     Dosage: 375 MG, UNK
     Route: 048
     Dates: start: 20121229, end: 20130104
  2. RANOLAZINE [Suspect]
     Dosage: 500 MG, BID
  3. ESOMEPRAZOLE [Concomitant]
  4. ATORVASTATIN [Concomitant]
  5. PRITORPLUS [Concomitant]
     Indication: HYPERTENSION
     Dosage: UNK
     Dates: start: 20080606, end: 20130108
  6. CARDIOASPIRIN [Concomitant]
     Indication: MYOCARDIAL ISCHAEMIA
     Dosage: UNK
     Dates: start: 20080606, end: 20130108

REACTIONS (2)
  - Dyspnoea [Recovered/Resolved]
  - Oliguria [Recovered/Resolved]
